FAERS Safety Report 6142463-X (Version None)
Quarter: 2009Q2

REPORT INFORMATION
  Report Type: 
  Country: None (occurrence: None)
  Receive Date: 20090403
  Receipt Date: 20090324
  Transmission Date: 20091009
  Serious: No
  Sender: FDA-Public Use
  Company Number: US-SOLVAY-00209001736

PATIENT
  Age: 35 Year
  Sex: Female

DRUGS (3)
  1. ANDROGEL [Suspect]
     Indication: ACCIDENTAL EXPOSURE
     Dosage: DAILY DOSE: 5 GRAM(S) VIA PUMP
     Route: 062
     Dates: start: 20090201
  2. CHANTIX [Concomitant]
     Indication: EX-TOBACCO USER
     Dosage: DAILY DOSE:  UNKNOWN
     Route: 048
     Dates: start: 20080101, end: 20080101
  3. CHANTIX [Concomitant]
     Dosage: DAILY DOSE:  UNKNOWN
     Route: 048
     Dates: start: 20090201

REACTIONS (1)
  - MENSTRUATION DELAYED [None]
